FAERS Safety Report 21016991 (Version 1)
Quarter: 2022Q2

REPORT INFORMATION
  Report Type: Spontaneous
  Country: US (occurrence: US)
  Receive Date: 20220628
  Receipt Date: 20220628
  Transmission Date: 20220721
  Serious: No
  Sender: FDA-Public Use
  Company Number: US-BAYER-2022A089695

PATIENT
  Age: 89 Year
  Sex: Male

DRUGS (1)
  1. MIRALAX [Suspect]
     Active Substance: POLYETHYLENE GLYCOL 3350
     Indication: Gastrointestinal disorder
     Dosage: 17G ONCE A DAY OR TWICE DOSE
     Route: 048

REACTIONS (3)
  - Product package associated injury [Unknown]
  - Product prescribing issue [Unknown]
  - Product packaging difficult to open [None]
